FAERS Safety Report 25325021 (Version 1)
Quarter: 2025Q2

REPORT INFORMATION
  Report Type: Spontaneous
  Country: CA (occurrence: CA)
  Receive Date: 20250516
  Receipt Date: 20250516
  Transmission Date: 20250716
  Serious: Yes (Other)
  Sender: TEVA
  Company Number: CA-TEVA-VS-3332178

PATIENT

DRUGS (4)
  1. LISDEXAMFETAMINE [Suspect]
     Active Substance: LISDEXAMFETAMINE
     Indication: Product used for unknown indication
     Dosage: FORM STRENGTH: 10 MG + 20 MG, 20 MG AT 8 AM, 10 MG AT NOON
     Route: 065
  2. VITAMINS [Concomitant]
     Active Substance: VITAMINS
     Indication: Product used for unknown indication
  3. BISOPROLOL [Concomitant]
     Active Substance: BISOPROLOL
     Indication: Product used for unknown indication
  4. MIRENA [Concomitant]
     Active Substance: LEVONORGESTREL
     Indication: Product used for unknown indication

REACTIONS (8)
  - Amnesia [Unknown]
  - Anxiety [Unknown]
  - Confusional state [Unknown]
  - Eczema [Not Recovered/Not Resolved]
  - Skin burning sensation [Not Recovered/Not Resolved]
  - Abdominal discomfort [Unknown]
  - Product dose omission issue [Unknown]
  - Oral discomfort [Not Recovered/Not Resolved]
